FAERS Safety Report 8308867-1 (Version None)
Quarter: 2012Q2

REPORT INFORMATION
  Report Type: 
  Country: None (occurrence: None)
  Receive Date: 20120424
  Receipt Date: 20120417
  Transmission Date: 20120825
  Serious: Yes (Other)
  Sender: FDA-Public Use
  Company Number: US-PFIZER INC-2012054132

PATIENT
  Age: 55 Year
  Sex: Male

DRUGS (4)
  1. ZYVOX [Suspect]
     Indication: OSTEOMYELITIS
     Dosage: UNK
  2. CUBICIN [Concomitant]
     Dosage: UNK
     Route: 042
     Dates: start: 20111206, end: 20111213
  3. VANCOMYCIN [Concomitant]
     Indication: OSTEOMYELITIS
     Dosage: UNK
     Route: 042
     Dates: start: 20111020, end: 20111031
  4. LEVAQUIN [Concomitant]
     Dosage: 750 MG, UNK
     Route: 048
     Dates: start: 20111017, end: 20111031

REACTIONS (3)
  - ERYTHEMA [None]
  - LOCALISED INFECTION [None]
  - LIMB CRUSHING INJURY [None]
